FAERS Safety Report 17748789 (Version 6)
Quarter: 2021Q1

REPORT INFORMATION
  Report Type: Spontaneous
  Country: US (occurrence: US)
  Receive Date: 20200505
  Receipt Date: 20210331
  Transmission Date: 20210419
  Serious: Yes (Hospitalization)
  Sender: FDA-Public Use
  Company Number: US-VIFOR (INTERNATIONAL) INC.-VIT-2020-05442

PATIENT
  Age: 71 Year
  Sex: Male

DRUGS (3)
  1. VELTASSA [Suspect]
     Active Substance: PATIROMER
     Indication: HYPERKALAEMIA
     Route: 048
     Dates: start: 20200402
  2. VELTASSA [Suspect]
     Active Substance: PATIROMER
     Route: 048
     Dates: start: 2020
  3. VELTASSA [Suspect]
     Active Substance: PATIROMER
     Route: 048
     Dates: start: 202004, end: 2020

REACTIONS (7)
  - Coronary artery disease [Unknown]
  - Constipation [Unknown]
  - Surgery [Unknown]
  - Fall [Unknown]
  - Product dose omission issue [Not Recovered/Not Resolved]
  - Lung disorder [Unknown]
  - Limb injury [Unknown]

NARRATIVE: CASE EVENT DATE: 2020
